FAERS Safety Report 7116749-6 (Version None)
Quarter: 2010Q4

REPORT INFORMATION
  Report Type: 
  Country: None (occurrence: None)
  Receive Date: 20101122
  Receipt Date: 20101104
  Transmission Date: 20110411
  Serious: Yes (Other)
  Sender: FDA-Public Use
  Company Number: GXKR2010GB12502

PATIENT
  Age: 64 Year
  Sex: Female

DRUGS (7)
  1. GABAPENTIN [Suspect]
     Indication: BACK PAIN
     Dosage: UNK
     Route: 065
     Dates: start: 20090305, end: 20101029
  2. ADCAL-D3 [Concomitant]
  3. ACETYLSALICYLIC ACID [Concomitant]
  4. ATORVASTATIN [Concomitant]
  5. CO-CODAMOL [Concomitant]
  6. OMEPRAZOLE [Concomitant]
  7. PROPRANOLOL [Concomitant]

REACTIONS (2)
  - BREAST PAIN [None]
  - GYNAECOMASTIA [None]
